FAERS Safety Report 6168599-5 (Version None)
Quarter: 2009Q2

REPORT INFORMATION
  Report Type: 
  Country: None (occurrence: None)
  Receive Date: 20090423
  Receipt Date: 20090416
  Transmission Date: 20091009
  Serious: Yes (Hospitalization)
  Sender: FDA-Public Use
  Company Number: CIP09000948

PATIENT
  Sex: Female

DRUGS (1)
  1. ACTONEL [Suspect]
     Dosage: 150 MG, ORAL
     Route: 048

REACTIONS (2)
  - DEHYDRATION [None]
  - VOMITING [None]
